FAERS Safety Report 4274887-X (Version None)
Quarter: 2004Q1

REPORT INFORMATION
  Report Type: 
  Country: None (occurrence: None)
  Receive Date: 20040116
  Receipt Date: 20040106
  Transmission Date: 20041129
  Serious: Yes (Death)
  Sender: FDA-Public Use
  Company Number: A-CH2004-04153

PATIENT
  Age: 54 Year
  Sex: Female

DRUGS (6)
  1. TRACLEER [Suspect]
     Indication: PULMONARY HYPERTENSION
     Dosage: SEE IMAGE
     Route: 048
     Dates: start: 20020509, end: 20020605
  2. TRACLEER [Suspect]
     Indication: PULMONARY HYPERTENSION
     Dosage: SEE IMAGE
     Route: 048
     Dates: start: 20020606
  3. PREDNISOLONE [Concomitant]
  4. SPIRONOLACTONE [Concomitant]
  5. ILOPROST (ILPPROST) [Concomitant]
  6. WARFARIN SODIUM [Concomitant]

REACTIONS (1)
  - SUDDEN DEATH [None]
